FAERS Safety Report 12328751 (Version 1)
Quarter: 2016Q2

REPORT INFORMATION
  Report Type: Spontaneous
  Country: US (occurrence: US)
  Receive Date: 20160503
  Receipt Date: 20160503
  Transmission Date: 20160815
  Serious: No
  Sender: FDA-Public Use
  Company Number: US-BEH-2015050542

PATIENT
  Sex: Female
  Weight: 56 kg

DRUGS (19)
  1. NORTRIPTYLINE 50 MG [Concomitant]
     Dosage: 1 TABLET AT BEDTIME
     Route: 048
  2. DIPHENHYDRAMINE. [Concomitant]
     Active Substance: DIPHENHYDRAMINE
     Dosage: 25 MG AS DIRECTED
     Route: 048
  3. LIDOCAINE 4% [Concomitant]
     Active Substance: LIDOCAINE
     Dosage: APPLY PRIOR TO INFUSION
     Route: 061
  4. ZOFRAN 4 MG [Concomitant]
     Dosage: 1 TABLET AS NEEDED
     Route: 048
  5. RANITIDINE 300 MG [Concomitant]
     Dosage: 1 TABLET THREE TIMES DAILY
     Route: 048
  6. PLAQUENIL [Concomitant]
     Active Substance: HYDROXYCHLOROQUINE SULFATE
     Dosage: 1 TABLET DAILY
     Route: 048
  7. AMBIEN 10 MG [Concomitant]
     Dosage: 1 TABLET AT BEDTIME
  8. FLONASE 50MCG SPRAY [Concomitant]
     Dosage: 2 SPRAYS AS DIRECTED
     Route: 045
  9. VERAPAMIL 120 MG [Concomitant]
     Dosage: 1 TABLET DAILY
     Route: 048
  10. OXYCONTIN 10MG [Concomitant]
     Dosage: 1 TABLET TWICE DAILY
     Route: 048
  11. PERCOCET 7.5-325 MG [Concomitant]
     Dosage: 1 TABLET 4 TIMES DAILY
     Route: 048
  12. AZATHIOPRINE 50 MG [Concomitant]
     Active Substance: AZATHIOPRINE
     Dosage: 250MG DAILY
     Route: 048
  13. PAXIL [Concomitant]
     Active Substance: PAROXETINE HYDROCHLORIDE
  14. HIZENTRA [Suspect]
     Active Substance: HUMAN IMMUNOGLOBULIN G
     Route: 058
     Dates: start: 20150205
  15. HIZENTRA [Suspect]
     Active Substance: HUMAN IMMUNOGLOBULIN G
     Indication: IMMUNODEFICIENCY COMMON VARIABLE
     Route: 058
     Dates: start: 20150205
  16. EPIPEN [Concomitant]
     Active Substance: EPINEPHRINE
     Indication: ANAPHYLACTIC REACTION
     Dosage: 0.3 MG AS NEEDED
     Route: 030
  17. MUPIROCIN 100% POWDER [Concomitant]
     Dosage: 1 DOSE AS NEEDED
     Route: 048
  18. ACETAMINOPHEN. [Concomitant]
     Active Substance: ACETAMINOPHEN
     Dosage: 650 MG AS DIRECTED
     Route: 048
  19. KLONOPIN 2 MG [Concomitant]
     Dosage: 1 TABLET TWICE DAILY
     Route: 048

REACTIONS (1)
  - Rash pruritic [Not Recovered/Not Resolved]
